FAERS Safety Report 8695806 (Version 2)
Quarter: 2013Q4

REPORT INFORMATION
  Report Type: Spontaneous
  Country: US (occurrence: US)
  Receive Date: 20120731
  Receipt Date: 20131107
  Transmission Date: 20140711
  Serious: Yes (Hospitalization, Other)
  Sender: FDA-Public Use
  Company Number: US-009507513-1207USA009827

PATIENT
  Age: 54 Year
  Sex: Female

DRUGS (3)
  1. ZOCOR [Suspect]
     Dosage: 20 MG, QD
     Route: 048
  2. METFORMIN HYDROCHLORIDE [Suspect]
     Dosage: 1000 MG, BID
     Route: 048
  3. PRINIVIL [Suspect]
     Dosage: 5 MG, QD

REACTIONS (13)
  - Asthenia [Unknown]
  - Escherichia urinary tract infection [Unknown]
  - Respiratory rate increased [Unknown]
  - Lactic acidosis [Unknown]
  - Nausea [Unknown]
  - Vomiting [Unknown]
  - Syncope [Unknown]
  - Haemodynamic instability [Unknown]
  - Blood pressure decreased [Unknown]
  - Hypothermia [Unknown]
  - Blood glucose decreased [Unknown]
  - Respiratory distress [Unknown]
  - Renal failure acute [Unknown]
